FAERS Safety Report 7370453-8 (Version None)
Quarter: 2011Q1

REPORT INFORMATION
  Report Type: 
  Country: None (occurrence: None)
  Receive Date: 20110323
  Receipt Date: 20110314
  Transmission Date: 20110831
  Serious: Yes (Hospitalization)
  Sender: FDA-Public Use
  Company Number: US-ASTRAZENECA-2011SE14035

PATIENT
  Age: 58 Year
  Sex: Male

DRUGS (4)
  1. VALIUM [Concomitant]
     Dosage: AS REQUIRED
     Route: 048
  2. SEROQUEL [Suspect]
     Indication: BIPOLAR DISORDER
     Route: 048
  3. CELEXA [Concomitant]
     Dosage: DAILY
     Route: 048
  4. AMBIEN [Concomitant]
     Dosage: AS REQUIRED
     Route: 048

REACTIONS (3)
  - LUMBAR VERTEBRAL FRACTURE [None]
  - CHOLECYSTECTOMY [None]
  - KNEE ARTHROPLASTY [None]
